FAERS Safety Report 5959012-9 (Version None)
Quarter: 2008Q4

REPORT INFORMATION
  Report Type: 
  Country: None (occurrence: None)
  Receive Date: 20081113
  Receipt Date: 20080718
  Transmission Date: 20090506
  Serious: Yes (Hospitalization)
  Sender: FDA-Public Use
  Company Number: ZYD-AE-08-094

PATIENT
  Sex: Male

DRUGS (4)
  1. CARVEDILOL [Suspect]
     Indication: HYPERTENSION
     Dosage: BID-PO
     Route: 048
     Dates: end: 20080618
  2. PRILOSEC (SEVERAL YEARS) [Concomitant]
  3. ARICEPT (SEVERAL YEARS) [Concomitant]
  4. THYROID MEDICATION (MANY YEARS) [Concomitant]

REACTIONS (4)
  - ASTHENIA [None]
  - BRADYCARDIA [None]
  - DIZZINESS [None]
  - HYPOTENSION [None]
